FAERS Safety Report 21010796 (Version 1)
Quarter: 2022Q2

REPORT INFORMATION
  Report Type: Spontaneous
  Country: TR (occurrence: TR)
  Receive Date: 20220627
  Receipt Date: 20220627
  Transmission Date: 20220721
  Serious: Yes (Disabling, Other)
  Sender: FDA-Public Use
  Company Number: TR-BAYER-2022A087809

PATIENT
  Age: 30 Year
  Sex: Male

DRUGS (4)
  1. GADOBUTROL [Suspect]
     Active Substance: GADOBUTROL
     Indication: Magnetic resonance imaging
     Dosage: UNK, ONCE
     Dates: start: 2020, end: 2020
  2. GADOBUTROL [Suspect]
     Active Substance: GADOBUTROL
     Indication: Malaise
  3. GADOBUTROL [Suspect]
     Active Substance: GADOBUTROL
     Indication: Asthenia
  4. GADOBUTROL [Suspect]
     Active Substance: GADOBUTROL
     Indication: Back pain

REACTIONS (6)
  - Muscle spasms [Recovered/Resolved]
  - Myalgia [Recovered/Resolved]
  - Bedridden [Recovered/Resolved]
  - Suicidal ideation [Recovered/Resolved]
  - Contrast media toxicity [Recovered/Resolved]
  - Renal impairment [Recovered/Resolved]

NARRATIVE: CASE EVENT DATE: 20200101
